FAERS Safety Report 10610098 (Version 1)
Quarter: 2014Q4

REPORT INFORMATION
  Report Type: Spontaneous
  Country: KR (occurrence: None)
  Receive Date: 20141124
  Receipt Date: 20141124
  Transmission Date: 20150529
  Serious: Yes (Hospitalization)
  Sender: FDA-Public Use
  Company Number: IMP_08204_2014

PATIENT
  Age: 20 Year
  Sex: Male

DRUGS (5)
  1. NICARDIPINE [Concomitant]
     Active Substance: NICARDIPINE
  2. DIVALPROEX SODIUM. [Suspect]
     Active Substance: DIVALPROEX SODIUM
     Indication: SEIZURE
  3. CEFTRIAXONE. [Concomitant]
     Active Substance: CEFTRIAXONE
  4. VITAMIN K /07504001/ [Concomitant]
  5. TRANEXAMIC ACID. [Concomitant]
     Active Substance: TRANEXAMIC ACID

REACTIONS (3)
  - Interstitial lung disease [None]
  - Haemorrhage intracranial [None]
  - Intraventricular haemorrhage [None]
